FAERS Safety Report 14370001 (Version 1)
Quarter: 2018Q1

REPORT INFORMATION
  Report Type: Spontaneous
  Country: DE (occurrence: DE)
  Receive Date: 20180110
  Receipt Date: 20180110
  Transmission Date: 20180509
  Serious: Yes (Life-Threatening, Hospitalization, Other)
  Sender: FDA-Public Use
  Company Number: DE-STRIDES ARCOLAB LIMITED-2018SP000127

PATIENT

DRUGS (2)
  1. IBUPROFEN. [Suspect]
     Active Substance: IBUPROFEN
     Dosage: 90 TABLETS (800 MG PER TABLET)
     Route: 048
  2. IBUPROFEN. [Suspect]
     Active Substance: IBUPROFEN
     Indication: PAIN
     Dosage: 2400 MG PER DAY
     Route: 048

REACTIONS (10)
  - Suicide attempt [Unknown]
  - Tachycardia [Unknown]
  - Intentional overdose [Unknown]
  - Hypotension [Unknown]
  - Acute kidney injury [Unknown]
  - Toxicity to various agents [Unknown]
  - Somnolence [Unknown]
  - Circulatory collapse [Recovered/Resolved]
  - Metabolic acidosis [Unknown]
  - Coma scale abnormal [Unknown]
